FAERS Safety Report 17877603 (Version 1)
Quarter: 2020Q2

REPORT INFORMATION
  Report Type: Spontaneous
  Country: PL (occurrence: PL)
  Receive Date: 20200609
  Receipt Date: 20200609
  Transmission Date: 20200714
  Serious: Yes (Life-Threatening, Hospitalization)
  Sender: FDA-Public Use
  Company Number: PL-PFIZER INC-2020222695

PATIENT
  Age: 34 Year
  Sex: Male
  Weight: 90 kg

DRUGS (3)
  1. APAP EXTRA STRENGTH [Suspect]
     Active Substance: ACETAMINOPHEN
     Dosage: 10 DF
  2. KETONAL [KETOPROFEN] [Suspect]
     Active Substance: KETOPROFEN
     Dosage: UNK
  3. ALPRAZOLAM. [Suspect]
     Active Substance: ALPRAZOLAM
     Dosage: UNK

REACTIONS (2)
  - Toxicity to various agents [Recovering/Resolving]
  - Suicide attempt [Recovering/Resolving]
